FAERS Safety Report 4293927-5 (Version None)
Quarter: 2004Q1

REPORT INFORMATION
  Report Type: 
  Country: None (occurrence: None)
  Receive Date: 20040212
  Receipt Date: 20040212
  Transmission Date: 20041129
  Serious: Yes (Hospitalization)
  Sender: FDA-Public Use
  Company Number: None

PATIENT
  Age: 62 Year
  Sex: Male
  Weight: 64.8 kg

DRUGS (10)
  1. TEQUIN [Suspect]
     Indication: DIVERTICULITIS
     Dosage: 400 MG IV
     Route: 042
  2. TEQUIN [Suspect]
     Indication: PANCREATITIS ACUTE
     Dosage: 400 MG IV
     Route: 042
  3. PLENDIL [Concomitant]
  4. KCL TAB [Concomitant]
  5. PROTONIX [Concomitant]
  6. PREDNISONE [Concomitant]
  7. NEURONTIN [Concomitant]
  8. AGGRENOX [Concomitant]
  9. FLAGYL [Concomitant]
  10. MORPHINE [Concomitant]

REACTIONS (1)
  - BLOOD GLUCOSE DECREASED [None]
